FAERS Safety Report 4630964-2 (Version None)
Quarter: 2005Q2

REPORT INFORMATION
  Report Type: 
  Country: None (occurrence: None)
  Receive Date: 20050406
  Receipt Date: 20050406
  Transmission Date: 20051028
  Serious: No
  Sender: FDA-Public Use
  Company Number: None

PATIENT
  Sex: Male
  Weight: 59.1 kg

DRUGS (2)
  1. CISPLATIN [Suspect]
     Dosage: 100 MG/M (2) ON DAYS 1 AND 22
     Dates: start: 20050228
  2. RADIATION [Suspect]

REACTIONS (1)
  - BLOOD URIC ACID INCREASED [None]
